FAERS Safety Report 17895320 (Version 5)
Quarter: 2021Q4

REPORT INFORMATION
  Report Type: Spontaneous
  Country: US (occurrence: US)
  Receive Date: 20200615
  Receipt Date: 20211103
  Transmission Date: 20220303
  Serious: Yes (Other)
  Sender: FDA-Public Use
  Company Number: US-PFIZER INC-2020229484

PATIENT
  Age: 69 Year
  Sex: Male
  Weight: 83.91 kg

DRUGS (2)
  1. PHENYTOIN [Suspect]
     Active Substance: PHENYTOIN
     Indication: Epilepsy
     Dosage: UNK
     Dates: start: 2020, end: 2020
  2. PHENYTOIN [Suspect]
     Active Substance: PHENYTOIN
     Indication: Seizure

REACTIONS (4)
  - Seizure [Recovered/Resolved]
  - Generalised tonic-clonic seizure [Unknown]
  - Drug level decreased [Recovered/Resolved]
  - Drug ineffective [Unknown]

NARRATIVE: CASE EVENT DATE: 20200101
